FAERS Safety Report 5883905-4 (Version None)
Quarter: 2008Q3

REPORT INFORMATION
  Report Type: 
  Country: None (occurrence: None)
  Receive Date: 20080915
  Receipt Date: 20080909
  Transmission Date: 20090109
  Serious: Yes (Death, Other)
  Sender: FDA-Public Use
  Company Number: JP-NOVOPROD-279353

PATIENT
  Age: 58 Year
  Sex: Male

DRUGS (4)
  1. NOVOSEVEN [Suspect]
     Indication: HAEMOSTASIS
     Dosage: 4.8 MG, UNK
     Route: 042
     Dates: start: 20080702, end: 20080720
  2. NOVOSEVEN [Suspect]
     Dates: start: 20080801
  3. FEIBA [Concomitant]
     Dosage: UNK, UNK
     Route: 042
     Dates: start: 20080722
  4. RITUXAN [Concomitant]
     Dates: start: 20080801

REACTIONS (2)
  - ASPERGILLOSIS [None]
  - DRUG INEFFECTIVE [None]
